FAERS Safety Report 20811124 (Version 1)
Quarter: 2022Q2

REPORT INFORMATION
  Report Type: Spontaneous
  Country: US (occurrence: US)
  Receive Date: 20220510
  Receipt Date: 20220510
  Transmission Date: 20220720
  Serious: No
  Sender: FDA-Public Use
  Company Number: US-Prasco Laboratories-PRAS20220138

PATIENT
  Age: 66 Year
  Sex: Female

DRUGS (1)
  1. ESTRADIOL [Suspect]
     Active Substance: ESTRADIOL
     Indication: Product used for unknown indication
     Dosage: UNKNOWN
     Route: 067

REACTIONS (3)
  - Vulvovaginal injury [Unknown]
  - Poor quality product administered [Unknown]
  - Product physical issue [None]
